FAERS Safety Report 16159588 (Version 1)
Quarter: 2019Q2

REPORT INFORMATION
  Report Type: Spontaneous
  Country: RU (occurrence: RU)
  Receive Date: 20190404
  Receipt Date: 20190404
  Transmission Date: 20190711
  Serious: Yes (Hospitalization)
  Sender: FDA-Public Use
  Company Number: RU-ARALEZ PHARMACEUTICALS R+D INC.-2019-ARA-001003

PATIENT
  Age: 63 Year
  Sex: Female
  Weight: 103 kg

DRUGS (6)
  1. METOPROLOL SUCCINATE. [Suspect]
     Active Substance: METOPROLOL SUCCINATE
     Indication: PRODUCT USED FOR UNKNOWN INDICATION
     Dosage: 25 MG DAILY
     Route: 048
  2. FORXIGA [Suspect]
     Active Substance: DAPAGLIFLOZIN
     Indication: TYPE 2 DIABETES MELLITUS
     Dosage: 10 MG DAILY
     Route: 048
  3. CAVINTON [Concomitant]
     Active Substance: VINPOCETINE
     Dosage: UNK
  4. ESSENTIALE                         /00022201/ [Concomitant]
  5. VALZ                               /01319601/ [Concomitant]
     Dosage: UNK
  6. GLUCOVANCE [Concomitant]
     Active Substance: GLYBURIDE\METFORMIN HYDROCHLORIDE
     Dosage: UNK

REACTIONS (7)
  - Thirst [Unknown]
  - Blood glucose decreased [Recovered/Resolved]
  - Psoriasis [Recovering/Resolving]
  - Feeling abnormal [Unknown]
  - Seborrhoeic dermatitis [Unknown]
  - Blood glucose increased [Recovered/Resolved]
  - Dry mouth [Unknown]
